FAERS Safety Report 5737825-6 (Version None)
Quarter: 2008Q2

REPORT INFORMATION
  Report Type: 
  Country: None (occurrence: None)
  Receive Date: 20080514
  Receipt Date: 20080508
  Transmission Date: 20081010
  Serious: Yes (Hospitalization)
  Sender: FDA-Public Use
  Company Number: US-MERCK-0805USA01778

PATIENT
  Age: 77 Year
  Sex: Male

DRUGS (2)
  1. PROSCAR [Suspect]
     Indication: PROSTATIC DISORDER
     Route: 048
     Dates: start: 20080401
  2. INSULIN [Concomitant]
     Route: 065

REACTIONS (2)
  - DRUG INEFFECTIVE [None]
  - PROSTATIC DISORDER [None]
